FAERS Safety Report 12072875 (Version 1)
Quarter: 2016Q1

REPORT INFORMATION
  Report Type: Spontaneous
  Country: US (occurrence: US)
  Receive Date: 20160212
  Receipt Date: 20160212
  Transmission Date: 20160526
  Serious: Yes (Hospitalization)
  Sender: FDA-Public Use
  Company Number: US-ASTELLAS-2015US047404

PATIENT
  Sex: Male

DRUGS (1)
  1. XTANDI [Suspect]
     Active Substance: ENZALUTAMIDE
     Indication: PROSTATE CANCER
     Dosage: 160 MG (40 GM X 4 CAPSULES), ONCE DAILY
     Route: 048
     Dates: start: 20150731

REACTIONS (4)
  - Hospitalisation [Unknown]
  - Musculoskeletal pain [Unknown]
  - Nausea [Unknown]
  - Groin pain [Unknown]
